FAERS Safety Report 14636681 (Version 3)
Quarter: 2019Q2

REPORT INFORMATION
  Report Type: Spontaneous
  Country: MY (occurrence: MY)
  Receive Date: 20180314
  Receipt Date: 20190625
  Transmission Date: 20190711
  Serious: Yes (Hospitalization, Other)
  Sender: FDA-Public Use
  Company Number: MY-PFIZER INC-2018081139

PATIENT
  Age: 67 Year
  Sex: Female

DRUGS (1)
  1. XELJANZ [Suspect]
     Active Substance: TOFACITINIB CITRATE
     Indication: RHEUMATOID ARTHRITIS
     Dosage: 5 MG, 2X/DAY (DOSE INTERVAL:12 HOURS)
     Route: 048
     Dates: start: 20171115

REACTIONS (5)
  - Wound secretion [Unknown]
  - Upper gastrointestinal haemorrhage [Unknown]
  - Hepatic cirrhosis [Unknown]
  - Portal hypertension [Unknown]
  - Varices oesophageal [Recovering/Resolving]

NARRATIVE: CASE EVENT DATE: 201802
